FAERS Safety Report 25537280 (Version 1)
Quarter: 2025Q3

REPORT INFORMATION
  Report Type: Spontaneous
  Country: EU (occurrence: EU)
  Receive Date: 20250710
  Receipt Date: 20250710
  Transmission Date: 20251021
  Serious: Yes (Other)
  Sender: SANOFI AVENTIS
  Company Number: EU-SANOFI-02576611

PATIENT
  Age: 52 Year
  Sex: Female

DRUGS (5)
  1. ENOXAPARIN SODIUM [Suspect]
     Active Substance: ENOXAPARIN SODIUM
     Indication: Multiple sclerosis
     Dosage: 4000 IU, BID (4000 IU IN THE MORNING AND 4000 IU IN THE EVENING)
  2. ENOXAPARIN SODIUM [Suspect]
     Active Substance: ENOXAPARIN SODIUM
  3. CORTISONE [Concomitant]
     Active Substance: CORTISONE
  4. ASPIRIN [Concomitant]
     Active Substance: ASPIRIN
  5. FOLIC ACID [Concomitant]
     Active Substance: FOLIC ACID
     Route: 042

REACTIONS (7)
  - Syncope [Unknown]
  - Diplopia [Unknown]
  - Cardiac disorder [Unknown]
  - Head discomfort [Unknown]
  - Maternal exposure during pregnancy [Unknown]
  - Off label use [Unknown]
  - Product dose omission in error [Unknown]
